FAERS Safety Report 13671466 (Version 1)
Quarter: 2017Q2

REPORT INFORMATION
  Report Type: Spontaneous
  Country: US (occurrence: US)
  Receive Date: 20170620
  Receipt Date: 20170620
  Transmission Date: 20170830
  Serious: Yes (Other)
  Sender: FDA-Public Use
  Company Number: US-ROCHE-629583

PATIENT
  Age: 70 Year
  Sex: Female
  Weight: 45.4 kg

DRUGS (9)
  1. IXEMPRA [Suspect]
     Active Substance: IXABEPILONE
     Indication: BREAST CANCER
     Dosage: FREQUENCY: OF 21 DAYS.
     Route: 042
  2. DECADRON [Concomitant]
     Active Substance: DEXAMETHASONE
     Indication: NAUSEA
     Dosage: FREQUENCY: OF 21 DAYS.
     Route: 042
  3. ASA [Concomitant]
     Active Substance: ASPIRIN
     Route: 065
  4. ASPIRIN. [Concomitant]
     Active Substance: ASPIRIN
     Route: 065
  5. OXYCONTIN [Concomitant]
     Active Substance: OXYCODONE HYDROCHLORIDE
     Indication: PAIN
     Route: 048
  6. HCTZ [Concomitant]
     Active Substance: HYDROCHLOROTHIAZIDE
     Route: 065
  7. BENADRYL [Concomitant]
     Active Substance: DIPHENHYDRAMINE HYDROCHLORIDE
     Indication: PREMEDICATION
     Dosage: FREQUENCY: OF 21 DAYS.
     Route: 042
  8. ZOFRAN [Concomitant]
     Active Substance: ONDANSETRON HYDROCHLORIDE
     Indication: NAUSEA
     Dosage: FREQUENCY: OF 21 DAYS.
     Route: 042
  9. XELODA [Suspect]
     Active Substance: CAPECITABINE
     Indication: BREAST CANCER
     Dosage: 1500 MG OF AM, 1000 MG OF PM, DAY 1 TO 14.
     Route: 048

REACTIONS (5)
  - Skin ulcer [Recovered/Resolved]
  - Palmar-plantar erythrodysaesthesia syndrome [Recovered/Resolved]
  - Oedema peripheral [Recovering/Resolving]
  - Blister [Unknown]
  - Oedema peripheral [Unknown]

NARRATIVE: CASE EVENT DATE: 20090316
